FAERS Safety Report 10445815 (Version 11)
Quarter: 2016Q2

REPORT INFORMATION
  Report Type: Spontaneous
  Country: US (occurrence: US)
  Receive Date: 20140910
  Receipt Date: 20160425
  Transmission Date: 20160815
  Serious: Yes (Hospitalization)
  Sender: FDA-Public Use
  Company Number: US-PFIZER INC-2014248165

PATIENT
  Age: 50 Year
  Sex: Male
  Weight: 107 kg

DRUGS (16)
  1. LYRICA [Suspect]
     Active Substance: PREGABALIN
     Indication: HYPOAESTHESIA
     Dosage: 100 MG, 3X/DAY
     Route: 048
     Dates: start: 2012
  2. LYRICA [Suspect]
     Active Substance: PREGABALIN
     Dosage: 200 MG, 3X/DAY  (6X A DAY, 2 CAP(S) TID)
     Route: 048
  3. LYRICA [Suspect]
     Active Substance: PREGABALIN
     Indication: CEREBROVASCULAR ACCIDENT
     Dosage: 100 MG, 3X/DAY
     Route: 048
     Dates: start: 2012
  4. LISINOPRIL. [Concomitant]
     Active Substance: LISINOPRIL
     Indication: HYPERTENSION
     Dosage: 40 MG, 2X/DAY
     Dates: start: 2010
  5. LYRICA [Suspect]
     Active Substance: PREGABALIN
     Indication: NEUROPATHY PERIPHERAL
     Dosage: 75 MG, 3X/DAY
     Dates: start: 2010
  6. LYRICA [Suspect]
     Active Substance: PREGABALIN
     Dosage: 200 MG, 2X/DAY (2 CAPS 2 X A DAY)
  7. VIAGRA [Concomitant]
     Active Substance: SILDENAFIL CITRATE
     Dosage: UNK
  8. LANTUS [Concomitant]
     Active Substance: INSULIN GLARGINE
     Dosage: UNK
     Dates: start: 2011
  9. LEVEMIR [Concomitant]
     Active Substance: INSULIN DETEMIR
     Dosage: UNK
  10. AMITRIPTYLINE [Concomitant]
     Active Substance: AMITRIPTYLINE
     Dosage: UNK
     Dates: start: 2011
  11. GLIPIZIDE. [Concomitant]
     Active Substance: GLIPIZIDE
     Dosage: UNK
     Dates: start: 2011
  12. ATENOLOL. [Concomitant]
     Active Substance: ATENOLOL
     Indication: HYPERTENSION
     Dosage: 40 MG, 2X/DAY
     Dates: start: 2010
  13. INSULIN [Concomitant]
     Active Substance: INSULIN NOS
     Dosage: UNK
  14. LYRICA [Suspect]
     Active Substance: PREGABALIN
     Indication: DIABETIC NEUROPATHY
     Dosage: 100 MG, 3X/DAY
  15. NEXIUM [Concomitant]
     Active Substance: ESOMEPRAZOLE MAGNESIUM
     Dosage: UNK
     Dates: start: 2009
  16. HUMALOG [Concomitant]
     Active Substance: INSULIN LISPRO
     Dosage: UNK
     Dates: start: 2011

REACTIONS (5)
  - Cerebrovascular accident [Not Recovered/Not Resolved]
  - Monoplegia [Not Recovered/Not Resolved]
  - Burning sensation [Not Recovered/Not Resolved]
  - Nerve injury [Unknown]
  - Pain in extremity [Not Recovered/Not Resolved]

NARRATIVE: CASE EVENT DATE: 201008
